FAERS Safety Report 25363328 (Version 1)
Quarter: 2025Q2

REPORT INFORMATION
  Report Type: Report from Study
  Country: IT (occurrence: IT)
  Receive Date: 20250527
  Receipt Date: 20250527
  Transmission Date: 20250717
  Serious: Yes (Death, Other)
  Sender: BAYER HEALTHCARE PHARMACEUTICALS INC.
  Company Number: IT-BAYER-2025A069756

PATIENT
  Age: 82 Year
  Sex: Female

DRUGS (7)
  1. MOXIFLOXACIN [Suspect]
     Active Substance: MOXIFLOXACIN
     Indication: Tuberculosis
  2. AMIKACIN [Concomitant]
     Active Substance: AMIKACIN
  3. AMOXICILLIN AND CLAVULANATE POTASSIUM [Concomitant]
     Active Substance: AMOXICILLIN\CLAVULANATE POTASSIUM
  4. MEROPENEM [Concomitant]
     Active Substance: MEROPENEM
  5. CLOFAZIMINE [Concomitant]
     Active Substance: CLOFAZIMINE
  6. CYCLOSERINE [Concomitant]
     Active Substance: CYCLOSERINE
  7. Bedaquilina [Concomitant]
     Route: 048

REACTIONS (3)
  - Autoimmune haemolytic anaemia [Fatal]
  - Product use in unapproved indication [None]
  - Product prescribing issue [None]
